FAERS Safety Report 11429906 (Version 1)
Quarter: 2015Q3

REPORT INFORMATION
  Report Type: Spontaneous
  Country: US (occurrence: US)
  Receive Date: 20150828
  Receipt Date: 20150828
  Transmission Date: 20151125
  Serious: No
  Sender: FDA-Public Use
  Company Number: US-ROCHE-1189046

PATIENT
  Sex: Male

DRUGS (5)
  1. RIBAVIRIN. [Suspect]
     Active Substance: RIBAVIRIN
     Indication: HEPATITIS C
     Route: 065
     Dates: start: 20120922, end: 20130205
  2. RIBAVIRIN. [Suspect]
     Active Substance: RIBAVIRIN
     Route: 065
  3. PEGASYS [Suspect]
     Active Substance: PEGINTERFERON ALFA-2A
     Indication: HEPATITIS C
     Route: 065
     Dates: start: 20120922
  4. PROZAC [Concomitant]
     Active Substance: FLUOXETINE HYDROCHLORIDE
  5. RIBAVIRIN. [Suspect]
     Active Substance: RIBAVIRIN
     Route: 065
     Dates: end: 20130205

REACTIONS (18)
  - Aggression [Unknown]
  - Dysphonia [Unknown]
  - Rash [Unknown]
  - Dehydration [Unknown]
  - Heart rate increased [Unknown]
  - Tinnitus [Unknown]
  - Fatigue [Unknown]
  - Headache [Unknown]
  - Gastrointestinal pain [Unknown]
  - Dry mouth [Unknown]
  - Cough [Unknown]
  - Diarrhoea [Unknown]
  - Hepatic pain [Unknown]
  - Depression [Unknown]
  - Anger [Unknown]
  - Dyspnoea [Unknown]
  - Pyrexia [Unknown]
  - Pruritus [Unknown]
